FAERS Safety Report 16006274 (Version 2)
Quarter: 2019Q1

REPORT INFORMATION
  Report Type: Report from Study
  Country: AR (occurrence: AR)
  Receive Date: 20190226
  Receipt Date: 20190314
  Transmission Date: 20190418
  Serious: Yes (Other)
  Sender: FDA-Public Use
  Company Number: AR-BAYER-2018-246337

PATIENT
  Age: 73 Year
  Sex: Male

DRUGS (7)
  1. ASPIRINETAS [Suspect]
     Active Substance: ASPIRIN
     Indication: ANTIPLATELET THERAPY
     Dosage: UNK
     Dates: start: 2009
  2. NORMORYTMIN [Concomitant]
     Indication: ARRHYTHMIA
     Dosage: UNK
  3. NORMORYTMIN [Concomitant]
     Indication: ARRHYTHMIA
  4. LOSARTAN. [Concomitant]
     Active Substance: LOSARTAN
     Indication: HYPERTENSION
  5. PANTOPRAZOLE [Concomitant]
     Active Substance: PANTOPRAZOLE
     Dosage: UNK
  6. LOSARTAN. [Concomitant]
     Active Substance: LOSARTAN
     Indication: HYPERTENSION
     Dosage: UNK
  7. RIVAROXABAN [Suspect]
     Active Substance: RIVAROXABAN
     Indication: ATRIAL FIBRILLATION
     Dosage: UNK
     Dates: start: 201807, end: 201809

REACTIONS (5)
  - Throat lesion [None]
  - Pharyngeal haemorrhage [Not Recovered/Not Resolved]
  - Acute oesophageal mucosal lesion [None]
  - Haemorrhoidal haemorrhage [Not Recovered/Not Resolved]
  - Gastrooesophageal reflux disease [None]

NARRATIVE: CASE EVENT DATE: 201809
